FAERS Safety Report 9433265 (Version 1)
Quarter: 2013Q3

REPORT INFORMATION
  Report Type: Spontaneous
  Country: PL (occurrence: PL)
  Receive Date: 20130731
  Receipt Date: 20130731
  Transmission Date: 20140515
  Serious: Yes (Life-Threatening)
  Sender: FDA-Public Use
  Company Number: PL-GLAXOSMITHKLINE-B0911366A

PATIENT
  Age: 6 Year
  Sex: Female
  Weight: 25.7 kg

DRUGS (2)
  1. ZINACEF [Suspect]
     Indication: PHARYNGITIS STREPTOCOCCAL
     Dosage: 500MG PER DAY
     Route: 042
     Dates: start: 20130619, end: 20130619
  2. TRIPTORELIN EMBONATE [Concomitant]
     Route: 030
     Dates: start: 20130618

REACTIONS (9)
  - Anaphylactic shock [Recovered/Resolved]
  - Urticaria [Recovered/Resolved]
  - Pain in extremity [Recovered/Resolved]
  - Hypoaesthesia [Recovered/Resolved]
  - Anxiety [Recovered/Resolved]
  - Somnolence [Recovered/Resolved]
  - Dyspnoea [Recovered/Resolved]
  - Blood pressure decreased [Recovered/Resolved]
  - Lip oedema [Recovered/Resolved]
